FAERS Safety Report 5596564-5 (Version None)
Quarter: 2007Q4

REPORT INFORMATION
  Report Type: 
  Country: None (occurrence: None)
  Receive Date: 20071219
  Receipt Date: 20071128
  Transmission Date: 20080405
  Serious: No
  Sender: FDA-Public Use
  Company Number: US-WYE-H01506907

PATIENT

DRUGS (1)
  1. TORISEL [Suspect]
     Dosage: DOSE AND FREQUENCY NOT PROVIDED

REACTIONS (1)
  - RASH [None]
